FAERS Safety Report 25624080 (Version 1)
Quarter: 2025Q3

REPORT INFORMATION
  Report Type: Spontaneous
  Country: US (occurrence: US)
  Receive Date: 20250730
  Receipt Date: 20250730
  Transmission Date: 20251020
  Serious: No
  Sender: SANOFI AVENTIS
  Company Number: US-SA-2025SA221349

PATIENT
  Sex: Female
  Weight: 10 kg

DRUGS (3)
  1. DUPIXENT [Suspect]
     Active Substance: DUPILUMAB
     Indication: Dermatitis atopic
     Dosage: 200 MG, Q4W
     Route: 058
  2. MOXIFLOXACIN [Concomitant]
     Active Substance: MOXIFLOXACIN
  3. CEFDINIR [Concomitant]
     Active Substance: CEFDINIR

REACTIONS (2)
  - Ear infection [Unknown]
  - Eyelid margin crusting [Unknown]
